FAERS Safety Report 4821294-4 (Version None)
Quarter: 2005Q4

REPORT INFORMATION
  Report Type: 
  Country: None (occurrence: None)
  Receive Date: 20051104
  Receipt Date: 20051104
  Transmission Date: 20060501
  Serious: Yes (Hospitalization)
  Sender: FDA-Public Use
  Company Number: None

PATIENT
  Age: 86 Year
  Sex: Female

DRUGS (2)
  1. LANOXIN [Suspect]
     Dosage: TABLET
  2. LEVOXYL [Suspect]
     Dosage: TABLET

REACTIONS (8)
  - CARDIAC FAILURE CONGESTIVE [None]
  - CONDITION AGGRAVATED [None]
  - DRUG DISPENSING ERROR [None]
  - HEART RATE INCREASED [None]
  - MEDICATION ERROR [None]
  - MENTAL IMPAIRMENT [None]
  - OEDEMA [None]
  - WRONG DRUG ADMINISTERED [None]
